FAERS Safety Report 18718595 (Version 4)
Quarter: 2021Q1

REPORT INFORMATION
  Report Type: Spontaneous
  Country: US (occurrence: US)
  Receive Date: 20210108
  Receipt Date: 20210222
  Transmission Date: 20210419
  Serious: No
  Sender: FDA-Public Use
  Company Number: US-GLAXOSMITHKLINE-US2020AMR259241

PATIENT
  Sex: Female

DRUGS (1)
  1. TRELEGY ELLIPTA [Suspect]
     Active Substance: FLUTICASONE FUROATE\UMECLIDINIUM BROMIDE\VILANTEROL TRIFENATATE
     Indication: CHRONIC OBSTRUCTIVE PULMONARY DISEASE
     Dosage: UNK (100/62.5/25 MCG)
     Dates: start: 2018

REACTIONS (9)
  - Asthenia [Unknown]
  - Respiratory tract congestion [Not Recovered/Not Resolved]
  - Fatigue [Unknown]
  - Loss of personal independence in daily activities [Unknown]
  - Secretion discharge [Unknown]
  - Product complaint [Unknown]
  - Chest discomfort [Unknown]
  - Drug ineffective [Unknown]
  - Dyspnoea [Not Recovered/Not Resolved]
